FAERS Safety Report 14418735 (Version 1)
Quarter: 2018Q1

REPORT INFORMATION
  Report Type: Spontaneous
  Country: US (occurrence: US)
  Receive Date: 20180122
  Receipt Date: 20180122
  Transmission Date: 20180509
  Serious: No
  Sender: FDA-Public Use
  Company Number: US-TEVA-2018-US-846529

PATIENT

DRUGS (1)
  1. AIRDUO RESPICLICK [Suspect]
     Active Substance: FLUTICASONE PROPIONATE\SALMETEROL XINAFOATE
     Dosage: 1DF: FLUTICASONE PROPIONATE / SALMETEROL XINOFOATE,232 MCG / 14 MCG
     Route: 065

REACTIONS (3)
  - Asthma [Unknown]
  - Drug ineffective [Unknown]
  - Malaise [Unknown]
